FAERS Safety Report 16213457 (Version 1)
Quarter: 2019Q2

REPORT INFORMATION
  Report Type: Spontaneous
  Country: US (occurrence: US)
  Receive Date: 20190418
  Receipt Date: 20190418
  Transmission Date: 20190711
  Serious: No
  Sender: FDA-Public Use
  Company Number: US-CMP PHARMA-2018CMP00024

PATIENT
  Age: 62 Year
  Sex: Female
  Weight: 83.63 kg

DRUGS (1)
  1. TRIANEX [Suspect]
     Active Substance: TRIAMCINOLONE ACETONIDE
     Indication: ECZEMA
     Dosage: UNK
     Route: 061
     Dates: start: 2017

REACTIONS (4)
  - Therapeutic product effect decreased [Recovered/Resolved]
  - Eczema [Recovering/Resolving]
  - Gastrointestinal disorder [Recovering/Resolving]
  - Respiration abnormal [Recovering/Resolving]
